FAERS Safety Report 5737676-2 (Version None)
Quarter: 2008Q2

REPORT INFORMATION
  Report Type: 
  Country: None (occurrence: None)
  Receive Date: 20080513
  Receipt Date: 20080513
  Transmission Date: 20081010
  Serious: No
  Sender: FDA-Public Use
  Company Number: None

PATIENT
  Age: 42 Year
  Sex: Male
  Weight: 120.2032 kg

DRUGS (1)
  1. ALLEGRA-D 12-HOUR TABLET AVENTIS [Suspect]
     Indication: NASAL CONGESTION
     Dosage: TAKE 1 TABLET BY MOUTH TWICE DAILY PO
     Route: 048
     Dates: start: 20080505, end: 20080512

REACTIONS (2)
  - MEDICATION RESIDUE [None]
  - PHARMACEUTICAL PRODUCT COMPLAINT [None]
